FAERS Safety Report 6093817-1 (Version None)
Quarter: 2009Q1

REPORT INFORMATION
  Report Type: 
  Country: None (occurrence: None)
  Receive Date: 20090226
  Receipt Date: 20090218
  Transmission Date: 20090719
  Serious: Yes (Hospitalization)
  Sender: FDA-Public Use
  Company Number: JP-WATSON-2009-01227

PATIENT
  Age: 85 Year
  Sex: Female

DRUGS (2)
  1. FAMOTIDINE [Suspect]
     Indication: DRUG USE FOR UNKNOWN INDICATION
     Dosage: 10 MG, BID
  2. MOXIFLOXACIN HCL [Suspect]
     Indication: OEDEMA PERIPHERAL
     Dosage: 400 MG, QD

REACTIONS (1)
  - ELECTROCARDIOGRAM QT PROLONGED [None]
